FAERS Safety Report 17546725 (Version 3)
Quarter: 2020Q2

REPORT INFORMATION
  Report Type: Spontaneous
  Country: US (occurrence: US)
  Receive Date: 20200316
  Receipt Date: 20200512
  Transmission Date: 20200713
  Serious: No
  Sender: FDA-Public Use
  Company Number: US-SA-2020SA066313

PATIENT
  Age: 34 Year
  Sex: Male

DRUGS (3)
  1. ADMELOG [Suspect]
     Active Substance: INSULIN LISPRO
     Indication: TYPE 1 DIABETES MELLITUS
     Dosage: 15 IU, QD
     Route: 065
  2. ADMELOG [Suspect]
     Active Substance: INSULIN LISPRO
     Dosage: 15 TO 20 UNITS,4 TO 5 TIMES A DAY
     Route: 065
  3. LANTUS [Concomitant]
     Active Substance: INSULIN GLARGINE
     Route: 065

REACTIONS (2)
  - Feeling abnormal [Not Recovered/Not Resolved]
  - Liquid product physical issue [Unknown]
